FAERS Safety Report 21951610 (Version 1)
Quarter: 2023Q1

REPORT INFORMATION
  Report Type: Spontaneous
  Country: DE (occurrence: None)
  Receive Date: 20230203
  Receipt Date: 20230203
  Transmission Date: 20230418
  Serious: Yes (Other)
  Sender: FDA-Public Use
  Company Number: 2023A025198

PATIENT
  Age: 6 Year
  Sex: Female
  Weight: 21 kg

DRUGS (3)
  1. KOSELUGO [Suspect]
     Active Substance: SELUMETINIB
     Indication: Neurofibroma
     Route: 048
     Dates: start: 20220628
  2. KOSELUGO [Suspect]
     Active Substance: SELUMETINIB
     Indication: Neurofibromatosis
     Route: 048
     Dates: start: 20220628
  3. KOSELUGO [Suspect]
     Active Substance: SELUMETINIB
     Indication: Brain stem glioma
     Route: 048
     Dates: start: 20220628

REACTIONS (3)
  - Hand dermatitis [Recovered/Resolved]
  - Eczema infected [Unknown]
  - Eczema vesicular [Unknown]

NARRATIVE: CASE EVENT DATE: 20220701
